FAERS Safety Report 4844782-3 (Version None)
Quarter: 2005Q4

REPORT INFORMATION
  Report Type: 
  Country: None (occurrence: None)
  Receive Date: 20051129
  Receipt Date: 20051118
  Transmission Date: 20060501
  Serious: Yes (Other)
  Sender: FDA-Public Use
  Company Number: 219144

PATIENT
  Sex: Female

DRUGS (1)
  1. RAPTIVA [Suspect]

REACTIONS (1)
  - CERVIX CARCINOMA [None]
